FAERS Safety Report 9718893 (Version 1)
Quarter: 2013Q4

REPORT INFORMATION
  Report Type: Spontaneous
  Country: GB (occurrence: None)
  Receive Date: 20131126
  Receipt Date: 20131126
  Transmission Date: 20140711
  Serious: Yes (Other)
  Sender: FDA-Public Use
  Company Number: AUR-APL-2013-09785

PATIENT
  Age: 74 Year
  Sex: Male
  Weight: 66.67 kg

DRUGS (8)
  1. LISINOPRIL (LISINOPRIL) [Suspect]
     Indication: PRODUCT USED FOR UNKNOWN INDICATION
     Dosage: ORAL
     Route: 048
     Dates: start: 20131014
  2. ALFUZOSIN (ALFUZOSIN) [Concomitant]
  3. ATENOLOL (ATENOLOL) [Concomitant]
  4. BENDROFLUMETHIAZIDE (BENDROFLUMETHIAZIDE) [Concomitant]
  5. FINASTERIDE (FINASTERIDE) [Concomitant]
  6. OMEPRAZOLE (OMEPRAZOLE) [Concomitant]
  7. SIMVASTATIN (SIMVASTATIN) [Concomitant]
  8. TRIMETHOPRIM (TRIMETHOPRIM) [Concomitant]

REACTIONS (3)
  - Swelling face [None]
  - Cyanosis [None]
  - Peripheral coldness [None]
